FAERS Safety Report 5580316-6 (Version None)
Quarter: 2007Q4

REPORT INFORMATION
  Report Type: 
  Country: None (occurrence: None)
  Receive Date: 20071130
  Receipt Date: 20070731
  Transmission Date: 20080405
  Serious: No
  Sender: FDA-Public Use
  Company Number: US200707005731

PATIENT
  Age: 63 Year
  Sex: Female

DRUGS (2)
  1. BYETTA [Suspect]
     Indication: TYPE 2 DIABETES MELLITUS
     Dosage: 10 UG, 2/D, SUBCUTANEOUS
     Route: 058
     Dates: start: 20070509, end: 20070730
  2. METFORMIN HCL [Concomitant]

REACTIONS (10)
  - ABDOMINAL PAIN [None]
  - BLOOD URINE PRESENT [None]
  - CHILLS [None]
  - DECREASED APPETITE [None]
  - DYSURIA [None]
  - ESCHERICHIA URINARY TRACT INFECTION [None]
  - MICTURITION URGENCY [None]
  - NAUSEA [None]
  - PYREXIA [None]
  - PYURIA [None]
